FAERS Safety Report 24631828 (Version 2)
Quarter: 2024Q4

REPORT INFORMATION
  Report Type: Spontaneous
  Country: FR (occurrence: FR)
  Receive Date: 20241118
  Receipt Date: 20241203
  Transmission Date: 20250115
  Serious: Yes (Life-Threatening, Hospitalization, Other)
  Sender: MYLAN
  Company Number: None

PATIENT
  Age: 69 Year
  Sex: Female
  Weight: 81.8 kg

DRUGS (21)
  1. QUETIAPINE [Suspect]
     Active Substance: QUETIAPINE
     Indication: Bipolar disorder
     Dosage: 800 MILLIGRAM, QD (2 TABLETS OF 400 MG IN THE EVENING)
     Route: 048
     Dates: end: 20240828
  2. FENOFIBRATE [Suspect]
     Active Substance: FENOFIBRATE
     Indication: Product used for unknown indication
     Dosage: 1 DOSAGE FORM, QD (1 TABLET IN THE MORNING)
     Route: 065
  3. ACETAMINOPHEN [Suspect]
     Active Substance: ACETAMINOPHEN
     Indication: Product used for unknown indication
     Dosage: 2 DOSAGE FORM, PRN (2 CPS, 3 TIMES A DAY, IF NECESSARY)
     Route: 065
  4. HALDOL [Suspect]
     Active Substance: HALOPERIDOL
     Indication: Bipolar disorder
     Dosage: 10 GTT DROPS, QD (10 DROP IN 1 DAY , 10 DROP)
     Route: 048
     Dates: start: 20240827
  5. TERALITHE [Suspect]
     Active Substance: LITHIUM CARBONATE
     Indication: Bipolar disorder
     Dosage: 800 MILLIGRAM (800 MILLIGRAM, 400 MG 2 TAB AT NIGHT)
     Route: 048
     Dates: start: 2018
  6. TERALITHE [Suspect]
     Active Substance: LITHIUM CARBONATE
     Dosage: 800 MILLIGRAM, QD
     Route: 048
     Dates: start: 202403
  7. TERALITHE [Suspect]
     Active Substance: LITHIUM CARBONATE
     Dosage: 600 MILLIGRAM, QD
     Route: 048
     Dates: start: 20240616
  8. TERALITHE [Suspect]
     Active Substance: LITHIUM CARBONATE
     Dosage: 800 MILLIGRAM, QD (800 MILLIGRAM, THERAPEUTIC WINDOW AND GRADUAL RESUMPTION)
     Route: 048
     Dates: start: 20240625
  9. TERALITHE [Suspect]
     Active Substance: LITHIUM CARBONATE
     Dosage: 800 MILLIGRAM, QD
     Route: 048
     Dates: start: 20240905
  10. TERALITHE [Suspect]
     Active Substance: LITHIUM CARBONATE
     Dosage: 400 MILLIGRAM, QD
     Route: 048
     Dates: start: 20240910
  11. LOXAPINE [Suspect]
     Active Substance: LOXAPINE
     Indication: Psychiatric decompensation
     Dosage: TID (25 MG MORNING, NOON AND 100 MG IN THE EVENING)
     Route: 048
     Dates: start: 20240624
  12. LOXAPINE [Suspect]
     Active Substance: LOXAPINE
     Dosage: TID (THEN 50 MG MORNING, NOON AND 100 MG IN THE EVENING)
     Route: 048
     Dates: start: 20240728, end: 20240827
  13. IMOVANE [Suspect]
     Active Substance: ZOPICLONE
     Indication: Product used for unknown indication
     Dosage: 7.5 MILLIGRAM, QD (7.5 MILLIGRAM, 7.5 MG 1 CAP AT BEDTIME)
     Route: 065
  14. VALIUM [Suspect]
     Active Substance: DIAZEPAM
     Indication: Product used for unknown indication
     Dosage: 5 MILLIGRAM, QD (5 MG 1 TAB AT BEDTIME)
     Route: 065
     Dates: start: 202406
  15. GLUCOPHAGE [Suspect]
     Active Substance: METFORMIN HYDROCHLORIDE
     Indication: Product used for unknown indication
     Dosage: 1000 MILLIGRAM, BID (2000 MILLIGRAM, QD)
     Route: 065
  16. ANETHOLTRITHION [Suspect]
     Active Substance: ANETHOLTRITHION
     Indication: Product used for unknown indication
     Dosage: 1 DOSAGE FORM, TID (1 TABLET MORNING, NOON AND EVENING)
     Route: 048
  17. ARTISIAL [Suspect]
     Active Substance: CALCIUM CHLORIDE\MAGNESIUM CHLORIDE\POTASSIUM CHLORIDE\POTASSIUM PHOSPHATE, DIBASIC\POTASSIUM PHOSPH
     Indication: Product used for unknown indication
     Dosage: 2 DOSAGE FORM, TID (SPRAY 2 SPRAYS 3X/DAY)
     Route: 065
  18. SERETIDE [Suspect]
     Active Substance: FLUTICASONE PROPIONATE\SALMETEROL XINAFOATE
     Indication: Product used for unknown indication
     Dosage: 250/25 ?G/DOSE 1 PUFF MORNING AND EVENING
     Route: 065
  19. ALBUTEROL [Suspect]
     Active Substance: ALBUTEROL
     Indication: Product used for unknown indication
     Dosage: 2 DOSAGE FORM, TID (2 PUFFS3 TIMES A DAY)
     Route: 065
  20. TRANSIPEG (PEG3350\ELECTROLYTES) [Suspect]
     Active Substance: POLYETHYLENE GLYCOL 3350\POTASSIUM CHLORIDE\SODIUM BICARBONATE\SODIUM CHLORIDE\SODIUM SULFATE
     Indication: Product used for unknown indication
     Dosage: 2 DOSAGE FORM, BID (2 SACHETS MORNING AND MIDDAY)
     Route: 065
  21. POLYETHYLENE GLYCOL 4000 [Suspect]
     Active Substance: POLYETHYLENE GLYCOL 4000
     Indication: Product used for unknown indication
     Dosage: 2 DOSAGE FORM, BID (2 SACHETS MORNING AND MIDDAY)
     Route: 065

REACTIONS (6)
  - Neuroleptic malignant syndrome [Recovered/Resolved]
  - Faecaloma [Recovered/Resolved]
  - Impaired gastric emptying [Unknown]
  - Fall [Recovered/Resolved]
  - Pulmonary embolism [Recovered/Resolved]
  - Extrapyramidal disorder [Recovered/Resolved]

NARRATIVE: CASE EVENT DATE: 20240727
